FAERS Safety Report 20921493 (Version 1)
Quarter: 2022Q2

REPORT INFORMATION
  Report Type: Report from Study
  Country: None (occurrence: FR)
  Receive Date: 20220606
  Receipt Date: 20220606
  Transmission Date: 20220721
  Serious: Yes (Death)
  Sender: FDA-Public Use
  Company Number: FR-HILL DERMACEUTICALS, INC.-2129522

PATIENT
  Age: 74 Year
  Sex: Male

DRUGS (14)
  1. TOLAK [Suspect]
     Active Substance: FLUOROURACIL
     Route: 061
     Dates: start: 20211129, end: 20211218
  2. METFORMIN HYDROCHLORIDE [Concomitant]
     Active Substance: METFORMIN HYDROCHLORIDE
     Route: 048
     Dates: start: 2011
  3. ACEBUTOLOL [Concomitant]
     Active Substance: ACEBUTOLOL
     Route: 048
     Dates: start: 2000
  4. TELMISARTAN AND HYDROCHLOROTHIAZIDE [Concomitant]
     Active Substance: HYDROCHLOROTHIAZIDE\TELMISARTAN
     Route: 048
     Dates: start: 2003
  5. AMLODIPINE MALEATE [Concomitant]
     Active Substance: AMLODIPINE MALEATE
     Route: 048
     Dates: start: 2003
  6. KARDEGIC [Concomitant]
     Active Substance: ASPIRIN DL-LYSINE
     Route: 048
     Dates: start: 2005
  7. ATORVASTATIN CALCIUM [Concomitant]
     Active Substance: ATORVASTATIN CALCIUM
     Route: 048
     Dates: start: 1998
  8. DOLIPRANE [Concomitant]
     Active Substance: ACETAMINOPHEN
     Route: 048
     Dates: start: 202105
  9. KETOPROFEN [Concomitant]
     Active Substance: KETOPROFEN
     Route: 048
     Dates: start: 202105
  10. ESOMEPRAZOLE MAGNESIUM [Concomitant]
     Active Substance: ESOMEPRAZOLE MAGNESIUM
     Route: 048
     Dates: start: 202105
  11. TRAMADOL HYDROCHLORIDE [Concomitant]
     Active Substance: TRAMADOL HYDROCHLORIDE
     Route: 048
     Dates: start: 202105
  12. Uvedose (Colecalciferol) [Concomitant]
     Route: 048
     Dates: start: 202105
  13. Anti-Covid Vaccination [Concomitant]
     Dates: start: 20210430, end: 20211130
  14. GLYCERIN\MINERAL OIL\PETROLATUM [Suspect]
     Active Substance: GLYCERIN\MINERAL OIL\PETROLATUM
     Route: 061
     Dates: start: 20211129, end: 20211218

REACTIONS (1)
  - Myocardial infarction [Fatal]

NARRATIVE: CASE EVENT DATE: 20211219
